FAERS Safety Report 10160518 (Version 2)
Quarter: 2014Q2

REPORT INFORMATION
  Report Type: Spontaneous
  Country: ES (occurrence: ES)
  Receive Date: 20140508
  Receipt Date: 20140523
  Transmission Date: 20141212
  Serious: Yes (Other)
  Sender: FDA-Public Use
  Company Number: ES-JNJFOC-20140500099

PATIENT
  Age: 49 Year
  Sex: Female

DRUGS (7)
  1. INCIVO [Suspect]
     Indication: HEPATITIS C
     Route: 048
  2. DARUNAVIR [Interacting]
     Indication: HIV INFECTION
     Route: 048
  3. TENOFOVIR [Suspect]
     Indication: HIV INFECTION
     Route: 066
  4. PEGYLATED INTERFERON ALFA-2B [Suspect]
     Indication: HEPATITIS C
     Route: 065
  5. PEGYLATED INTERFERON ALFA-2B [Suspect]
     Indication: HEPATITIS C
     Route: 065
  6. RIBAVIRIN [Suspect]
     Indication: HEPATITIS C
     Route: 065
  7. RIBAVIRIN [Suspect]
     Indication: HEPATITIS C
     Route: 065

REACTIONS (3)
  - Anaemia [Unknown]
  - Drug interaction [Unknown]
  - Off label use [Unknown]
